FAERS Safety Report 4371907-9 (Version None)
Quarter: 2004Q2

REPORT INFORMATION
  Report Type: 
  Country: None (occurrence: None)
  Receive Date: 20040602
  Receipt Date: 20040602
  Transmission Date: 20050107
  Serious: Yes (Disabling)
  Sender: FDA-Public Use
  Company Number: None

PATIENT
  Age: 72 Year
  Sex: Female
  Weight: 78.9259 kg

DRUGS (11)
  1. CRESTOR [Suspect]
     Indication: BLOOD CHOLESTEROL
     Dosage: 10 MG 1 PER DAY ORAL
     Route: 048
     Dates: start: 20040309, end: 20040311
  2. SLO-BID [Concomitant]
  3. AZMACORT [Concomitant]
  4. ALLOPURIN [Concomitant]
  5. ALBUTEROL SPRAY [Concomitant]
  6. MIACALCIN [Concomitant]
  7. CALCIUM SUPPLEMENT [Concomitant]
  8. TOPROL-XL [Concomitant]
  9. CARTIAXTER [Concomitant]
  10. CLONIDINE HCL [Concomitant]
  11. HYDROCHLOROTHIAZID [Concomitant]

REACTIONS (10)
  - ABASIA [None]
  - BALANCE DISORDER [None]
  - CEREBROVASCULAR ACCIDENT [None]
  - DIFFICULTY IN WALKING [None]
  - DYSSTASIA [None]
  - MUSCULAR WEAKNESS [None]
  - MYALGIA [None]
  - OEDEMA PERIPHERAL [None]
  - THROMBOSIS [None]
  - VASCULAR RUPTURE [None]
